FAERS Safety Report 22041635 (Version 1)
Quarter: 2023Q1

REPORT INFORMATION
  Report Type: Spontaneous
  Country: US (occurrence: None)
  Receive Date: 20230224
  Receipt Date: 20230224
  Transmission Date: 20230417
  Serious: Yes (Other)
  Sender: FDA-Public Use
  Company Number: None

PATIENT
  Age: 75 Year
  Sex: Male
  Weight: 94.2 kg

DRUGS (1)
  1. REVLIMID [Suspect]
     Active Substance: LENALIDOMIDE
     Dates: start: 20230210, end: 20230213

REACTIONS (9)
  - Rash pruritic [None]
  - Rash erythematous [None]
  - Rash macular [None]
  - Rash [None]
  - Urticaria [None]
  - Pruritus [None]
  - Erythema [None]
  - Swelling face [None]
  - Feeling abnormal [None]

NARRATIVE: CASE EVENT DATE: 20230212
